FAERS Safety Report 5448856-8 (Version None)
Quarter: 2007Q3

REPORT INFORMATION
  Report Type: 
  Country: None (occurrence: None)
  Receive Date: 20070911
  Receipt Date: 20070725
  Transmission Date: 20080115
  Serious: No
  Sender: FDA-Public Use
  Company Number: US-BRISTOL-MYERS SQUIBB COMPANY-13857545

PATIENT
  Sex: Female
  Weight: 59 kg

DRUGS (4)
  1. EMSAM [Suspect]
     Indication: DEPRESSION
  2. EMSAM [Interacting]
     Indication: ANXIETY
  3. RELPAX [Interacting]
  4. TOPAMAX [Interacting]

REACTIONS (13)
  - DIZZINESS [None]
  - DRUG INTERACTION [None]
  - DYSACUSIS [None]
  - FATIGUE [None]
  - GALACTORRHOEA [None]
  - IRRITABILITY [None]
  - MIGRAINE [None]
  - MUSCLE SPASMS [None]
  - NIGHT SWEATS [None]
  - PAIN IN EXTREMITY [None]
  - PARAESTHESIA [None]
  - POLYMENORRHOEA [None]
  - VISUAL DISTURBANCE [None]
